FAERS Safety Report 9008636 (Version 1)
Quarter: 2013Q1

REPORT INFORMATION
  Report Type: Report from Study
  Country: US (occurrence: US)
  Receive Date: 20130111
  Receipt Date: 20130111
  Transmission Date: 20140127
  Serious: Yes (Hospitalization)
  Sender: FDA-Public Use
  Company Number: US-ABBOTT-13P-163-1033255-00

PATIENT
  Age: 59 Year
  Sex: Female

DRUGS (10)
  1. HUMIRA [Suspect]
     Indication: RHEUMATOID ARTHRITIS
     Dosage: WEEKLY
     Dates: start: 201001, end: 201003
  2. METFORMIN [Concomitant]
     Indication: DIABETES MELLITUS
  3. LANTUS [Concomitant]
     Indication: DIABETES MELLITUS
     Dosage: 80 OR 85 UNITS AT NIGHT
  4. HUMALOG [Concomitant]
     Indication: DIABETES MELLITUS
     Dosage: PER MEAL BEFORE MEALS
  5. FLAXSEED [Concomitant]
     Indication: SUPPLEMENTATION THERAPY
     Dosage: DAILY
  6. MULTIVITAMINS [Concomitant]
     Indication: VITAMIN SUPPLEMENTATION
     Dosage: DAILY
  7. CALCIUM [Concomitant]
     Indication: MINERAL SUPPLEMENTATION
  8. VITAMIN D [Concomitant]
     Indication: VITAMIN SUPPLEMENTATION
     Dosage: DAILY
  9. PRILOSEC [Concomitant]
     Indication: PRODUCT USED FOR UNKNOWN INDICATION
     Dosage: DAILY
  10. AZITHROPRINE [Concomitant]
     Indication: RHEUMATOID ARTHRITIS

REACTIONS (8)
  - Lung disorder [Not Recovered/Not Resolved]
  - Dyspnoea [Unknown]
  - Insomnia [Unknown]
  - Fatigue [Unknown]
  - Depression [Unknown]
  - Hypertension [Unknown]
  - Fluid retention [Unknown]
  - Dyspnoea [Unknown]
